FAERS Safety Report 20414650 (Version 1)
Quarter: 2022Q1

REPORT INFORMATION
  Report Type: Report from Study
  Country: FR (occurrence: None)
  Receive Date: 20220202
  Receipt Date: 20220202
  Transmission Date: 20220423
  Serious: Yes (Other)
  Sender: FDA-Public Use
  Company Number: FR-ROCHE-3009862

PATIENT
  Age: 62 Year
  Sex: Male

DRUGS (5)
  1. ATEZOLIZUMAB [Suspect]
     Active Substance: ATEZOLIZUMAB
     Indication: Colorectal cancer metastatic
     Dosage: LAST TIME RECEIVED (1200 MG) ON 27/DEC/2021
     Route: 041
     Dates: start: 20201214
  2. BEVACIZUMAB [Suspect]
     Active Substance: BEVACIZUMAB
     Indication: Colorectal cancer metastatic
     Dosage: LAST TIME (525 MG) RECEIVED ON 15/NOV/2021
     Route: 041
     Dates: start: 20210218, end: 20211115
  3. CAPECITABINE [Suspect]
     Active Substance: CAPECITABINE
     Indication: Colorectal cancer metastatic
     Dosage: LAST TIME RECEIVED (3000 MG) ON 07/JAN/2022
     Route: 048
     Dates: start: 20201214, end: 20220107
  4. OXALIPLATIN [Suspect]
     Active Substance: OXALIPLATIN
     Indication: Colorectal cancer metastatic
     Dosage: LAST TIME RECEIVED (245 MG) ON 27/DEC/2021
     Route: 041
     Dates: start: 20201214, end: 20211227
  5. YTTRIUM CHLORIDE Y-90 [Suspect]
     Active Substance: YTTRIUM CHLORIDE Y-90
     Indication: Colorectal cancer metastatic
     Route: 041
     Dates: start: 20210128, end: 20210128

REACTIONS (2)
  - Abdominal pain [Not Recovered/Not Resolved]
  - Diarrhoea [Not Recovered/Not Resolved]

NARRATIVE: CASE EVENT DATE: 20220111
